FAERS Safety Report 4673710-9 (Version None)
Quarter: 2005Q2

REPORT INFORMATION
  Report Type: 
  Country: None (occurrence: None)
  Receive Date: 20050523
  Receipt Date: 20050510
  Transmission Date: 20051028
  Serious: Yes (Hospitalization)
  Sender: FDA-Public Use
  Company Number: 2005BI000655

PATIENT
  Age: 45 Year
  Sex: Male

DRUGS (4)
  1. AVONEX [Suspect]
     Indication: MULTIPLE SCLEROSIS
     Dosage: 30 UG; QW; IM
     Route: 030
     Dates: start: 19960101, end: 20041201
  2. AVONEX [Suspect]
     Indication: MULTIPLE SCLEROSIS
     Dosage: IM
     Route: 030
  3. BACLOFEN [Concomitant]
  4. NORVASC [Concomitant]

REACTIONS (4)
  - CONDITION AGGRAVATED [None]
  - DECUBITUS ULCER [None]
  - MULTIPLE SCLEROSIS [None]
  - URINARY INCONTINENCE [None]
